FAERS Safety Report 8555433 (Version 3)
Quarter: 2014Q1

REPORT INFORMATION
  Report Type: Spontaneous
  Country: US (occurrence: US)
  Receive Date: 20120510
  Receipt Date: 20140219
  Transmission Date: 20141002
  Serious: Yes (Hospitalization, Other)
  Sender: FDA-Public Use
  Company Number: US-BAYER-2012-043634

PATIENT
  Age: 26 Year
  Sex: Female

DRUGS (1)
  1. YAZ [Suspect]
     Dosage: UNK
     Dates: start: 200802, end: 200810

REACTIONS (8)
  - Cholecystectomy [None]
  - Cholecystitis [None]
  - Injury [None]
  - Pain [None]
  - Psychological trauma [None]
  - Emotional distress [None]
  - Anxiety [None]
  - Anhedonia [None]
